FAERS Safety Report 14441881 (Version 2)
Quarter: 2018Q1

REPORT INFORMATION
  Report Type: Report from Study
  Country: None (occurrence: TR)
  Receive Date: 20180125
  Receipt Date: 20180130
  Transmission Date: 20180509
  Serious: Yes (Hospitalization)
  Sender: FDA-Public Use
  Company Number: TR-ABBVIE-18K-161-2236202-00

PATIENT
  Age: 65 Year
  Sex: Female
  Weight: 104 kg

DRUGS (18)
  1. FOLBIOL [Concomitant]
     Active Substance: FOLIC ACID
     Indication: VITAMIN SUPPLEMENTATION
     Route: 048
     Dates: start: 20180124
  2. DUODOPA [Suspect]
     Active Substance: CARBIDOPA\LEVODOPA
     Dosage: MORNING DOSE: 5.70 ML?CONITNUOUS DOSE: 4.40 ML?EXTRA DOSE: 2.00 ML
     Route: 050
     Dates: start: 201801
  3. DIAFORMIN [Concomitant]
     Active Substance: METFORMIN HYDROCHLORIDE
     Indication: DIABETES MELLITUS
     Route: 048
  4. RENNIE [Concomitant]
     Active Substance: MAGNESIUM CARBONATE
     Indication: PROPHYLAXIS
     Dosage: CALCIUM CARBONATE 680.0 MG?? MAGNESIUM CARBONATE 80.0 MG
     Route: 048
  5. DETRUSITOL [Concomitant]
     Active Substance: TOLTERODINE TARTRATE
     Indication: URINARY INCONTINENCE
     Route: 048
  6. GLUKOFEN [Concomitant]
     Active Substance: METFORMIN HYDROCHLORIDE
     Indication: DIABETES MELLITUS
     Route: 048
  7. DODEX [Concomitant]
     Active Substance: CYANOCOBALAMIN
     Indication: VITAMIN SUPPLEMENTATION
     Route: 030
     Dates: start: 20180124
  8. LIPITOR [Concomitant]
     Active Substance: ATORVASTATIN CALCIUM
     Indication: BLOOD CHOLESTEROL
     Route: 048
  9. SANELOC [Concomitant]
     Active Substance: METOPROLOL
     Indication: HYPERTENSION
     Route: 048
  10. AYRA PLUS [Concomitant]
     Active Substance: CANDESARTAN CILEXETIL\HYDROCHLOROTHIAZIDE
     Indication: HYPERTENSION
     Dosage: 16 / 12. 5 MG?AS NEEDED DUE TO BLOOD PRESSURE
     Route: 048
  11. DAFLON (DIOSMIN/HESPERIDIN) [Concomitant]
     Active Substance: DIOSMIN\HESPERIDIN
     Indication: PROPHYLAXIS
     Route: 048
  12. CORASPIN [Concomitant]
     Active Substance: ASPIRIN
     Indication: ANTICOAGULANT THERAPY
     Route: 048
     Dates: start: 20180126
  13. VASTAREL [Concomitant]
     Active Substance: TRIMETAZIDINE DIHYDROCHLORIDE
     Indication: CARDIAC DISORDER
     Route: 048
  14. NAPROSYN E [Concomitant]
     Active Substance: NAPROXEN
     Indication: CARDIAC DISORDER
     Route: 048
  15. PANTPAS [Concomitant]
     Active Substance: PANTOPRAZOLE SODIUM
     Indication: PROPHYLAXIS
     Route: 048
     Dates: end: 20180122
  16. DUODOPA [Suspect]
     Active Substance: CARBIDOPA\LEVODOPA
     Indication: PARKINSON^S DISEASE
     Dosage: MORNING DOSE: 5.00 ML?CONTINUOUS DOSE: 3.70 ML?EXTRA DOSE: 2.00ML
     Route: 050
     Dates: start: 20180123, end: 201801
  17. RANTUDIL [Concomitant]
     Active Substance: ACEMETACIN
     Indication: ANALGESIC THERAPY
     Dosage: WHEN NEEDED
     Route: 048
  18. CLEXANE [Concomitant]
     Active Substance: ENOXAPARIN SODIUM
     Indication: ANTICOAGULANT THERAPY
     Route: 058
     Dates: start: 20180126

REACTIONS (1)
  - Blood pressure decreased [Recovered/Resolved]

NARRATIVE: CASE EVENT DATE: 20180124
